FAERS Safety Report 8968380 (Version 1)
Quarter: 2012Q4

REPORT INFORMATION
  Report Type: 
  Country: US (occurrence: US)
  Receive Date: 20121218
  Receipt Date: 20121218
  Transmission Date: 20130627
  Serious: No
  Sender: FDA-Public Use
  Company Number: US-BRISTOL-MYERS SQUIBB COMPANY-16766438

PATIENT
  Age: 65 Year
  Sex: Female

DRUGS (1)
  1. ABILIFY [Suspect]
     Dosage: Interr, restat in Jan2011 and again inter and restat in Mar2011
     Dates: start: 2007, end: 20111024

REACTIONS (2)
  - Tremor [Not Recovered/Not Resolved]
  - Weight increased [Unknown]
